FAERS Safety Report 23428113 (Version 1)
Quarter: 2024Q1

REPORT INFORMATION
  Report Type: Report from Study
  Country: US (occurrence: US)
  Receive Date: 20240122
  Receipt Date: 20240122
  Transmission Date: 20240409
  Serious: Yes (Other)
  Sender: FDA-Public Use
  Company Number: US-ALNYLAM PHARMACEUTICALS, INC.-ALN-2024-000347

PATIENT

DRUGS (1)
  1. AMVUTTRA [Suspect]
     Active Substance: VUTRISIRAN
     Indication: Hereditary neuropathic amyloidosis
     Dosage: UNK
     Route: 065
     Dates: start: 20230329, end: 20231228

REACTIONS (5)
  - Neuropathy peripheral [Unknown]
  - Depression [Unknown]
  - Ejection fraction decreased [Unknown]
  - Drug effect less than expected [Unknown]
  - Implantable defibrillator insertion [Unknown]

NARRATIVE: CASE EVENT DATE: 20231201
